FAERS Safety Report 5035115-0 (Version None)
Quarter: 2006Q2

REPORT INFORMATION
  Report Type: 
  Country: None (occurrence: None)
  Receive Date: 20060622
  Receipt Date: 20060609
  Transmission Date: 20061013
  Serious: Yes (Other)
  Sender: FDA-Public Use
  Company Number: CHNY2006JP01812

PATIENT
  Age: 73 Year
  Sex: 0

DRUGS (1)
  1. NICOTINE [Suspect]
     Indication: SMOKING CESSATION THERAPY
     Dosage: 14 MG TRANSDERMAL
     Route: 062

REACTIONS (1)
  - HYPOACUSIS [None]
